FAERS Safety Report 20138647 (Version 1)
Quarter: 2021Q4

REPORT INFORMATION
  Report Type: Spontaneous
  Country: TH (occurrence: TH)
  Receive Date: 20211202
  Receipt Date: 20211202
  Transmission Date: 20220303
  Serious: Yes (Life-Threatening, Hospitalization, Other)
  Sender: FDA-Public Use
  Company Number: TH-MACLEODS PHARMACEUTICALS US LTD-MAC2021033550

PATIENT

DRUGS (5)
  1. ESCITALOPRAM [Interacting]
     Active Substance: ESCITALOPRAM OXALATE
     Indication: Major depression
     Dosage: UNK
     Route: 065
  2. LAMOTRIGINE [Interacting]
     Active Substance: LAMOTRIGINE
     Indication: Major depression
     Dosage: UNK
     Route: 065
  3. LURASIDONE [Interacting]
     Active Substance: LURASIDONE
     Indication: Major depression
     Dosage: UNK
     Route: 065
  4. BUPROPION [Interacting]
     Active Substance: BUPROPION
     Indication: Major depression
     Dosage: UNK, (EXTENDED RELEASE)
     Route: 065
  5. VORTIOXETINE [Interacting]
     Active Substance: VORTIOXETINE
     Indication: Major depression
     Dosage: UNK
     Route: 065

REACTIONS (8)
  - Serotonin syndrome [Recovered/Resolved]
  - Encephalopathy [Recovered/Resolved]
  - Electrocardiogram QT prolonged [Recovered/Resolved]
  - Anticholinergic syndrome [Recovered/Resolved]
  - Rhabdomyolysis [Recovered/Resolved]
  - Pneumonia aspiration [Recovered/Resolved]
  - Intentional overdose [Unknown]
  - Drug interaction [Unknown]
